FAERS Safety Report 22981507 (Version 3)
Quarter: 2023Q4

REPORT INFORMATION
  Report Type: Spontaneous
  Country: US (occurrence: US)
  Receive Date: 20230925
  Receipt Date: 20231130
  Transmission Date: 20240109
  Serious: Yes (Other)
  Sender: FDA-Public Use
  Company Number: US-PFIZER INC-PV202300159108

PATIENT
  Age: 72 Year
  Sex: Female
  Weight: 96.281 kg

DRUGS (2)
  1. IBRANCE [Suspect]
     Active Substance: PALBOCICLIB
     Indication: Breast cancer metastatic
     Dosage: TAKE 1 CAP PO DAILY FOR 21 DAYS, THEN OFF FOR 7 DAYS EVERY 28 DAYS
     Route: 048
  2. FASLODEX [Concomitant]
     Active Substance: FULVESTRANT

REACTIONS (11)
  - Neutropenia [Not Recovered/Not Resolved]
  - Cytopenia [Unknown]
  - Sialoadenitis [Unknown]
  - Salivary gland disorder [Unknown]
  - Neoplasm progression [Unknown]
  - Hypertension [Unknown]
  - Fatigue [Unknown]
  - Arthralgia [Unknown]
  - Anaemia [Not Recovered/Not Resolved]
  - Pain [Unknown]
  - Platelet count decreased [Unknown]
